FAERS Safety Report 21531934 (Version 1)
Quarter: 2022Q4

REPORT INFORMATION
  Report Type: Spontaneous
  Country: US (occurrence: None)
  Receive Date: 20221101
  Receipt Date: 20221101
  Transmission Date: 20230113
  Serious: Yes (Hospitalization, Other)
  Sender: FDA-Public Use
  Company Number: US-Unichem Pharmaceuticals (USA) Inc-UCM202210-001129

PATIENT
  Age: 12 Year

DRUGS (1)
  1. AMLODIPINE [Suspect]
     Active Substance: AMLODIPINE BESYLATE
     Indication: Overdose
     Dosage: OVERDOSE WITH UNKNOWN AMOUNT

REACTIONS (4)
  - Urine output decreased [Unknown]
  - Ejection fraction decreased [Recovered/Resolved]
  - Hypotension [Recovered/Resolved]
  - Overdose [Unknown]
